FAERS Safety Report 21857087 (Version 6)
Quarter: 2024Q3

REPORT INFORMATION
  Report Type: Spontaneous
  Country: GB (occurrence: GB)
  Receive Date: 20230113
  Receipt Date: 20240710
  Transmission Date: 20241016
  Serious: Yes (Other)
  Sender: SANOFI AVENTIS
  Company Number: GB-ROCHE-3256583

PATIENT
  Sex: Male

DRUGS (31)
  1. OXALIPLATIN [Suspect]
     Active Substance: OXALIPLATIN
     Indication: Richter^s syndrome
     Dosage: UNK
     Route: 065
     Dates: start: 20200111, end: 20210101
  2. OXALIPLATIN [Suspect]
     Active Substance: OXALIPLATIN
     Indication: Malignant neoplasm progression
  3. PREDNISONE [Suspect]
     Active Substance: PREDNISONE
     Indication: Richter^s syndrome
     Dosage: UNK
     Route: 065
     Dates: start: 20200106, end: 20200110
  4. PREDNISONE [Suspect]
     Active Substance: PREDNISONE
     Indication: Malignant neoplasm progression
  5. CARBOPLATIN [Suspect]
     Active Substance: CARBOPLATIN
     Indication: Richter^s syndrome
     Dosage: UNK
     Route: 065
     Dates: start: 20200111, end: 20210101
  6. CARBOPLATIN [Suspect]
     Active Substance: CARBOPLATIN
     Indication: Malignant neoplasm progression
  7. CISPLATIN [Suspect]
     Active Substance: CISPLATIN
     Indication: Richter^s syndrome
     Dosage: UNK
     Route: 065
     Dates: start: 20200111, end: 20210101
  8. CISPLATIN [Suspect]
     Active Substance: CISPLATIN
     Indication: Malignant neoplasm progression
  9. CYCLOPHOSPHAMIDE [Suspect]
     Active Substance: CYCLOPHOSPHAMIDE
     Indication: Richter^s syndrome
     Dosage: UNK
     Route: 065
     Dates: start: 20150109, end: 20160102
  10. CYCLOPHOSPHAMIDE [Suspect]
     Active Substance: CYCLOPHOSPHAMIDE
     Indication: Malignant neoplasm progression
     Dosage: UNK
     Route: 065
     Dates: start: 20200106, end: 20200110
  11. DOXORUBICIN [Suspect]
     Active Substance: DOXORUBICIN
     Indication: Malignant neoplasm progression
     Dosage: UNK
     Route: 065
     Dates: start: 20200106, end: 20200110
  12. DOXORUBICIN [Suspect]
     Active Substance: DOXORUBICIN
     Indication: Richter^s syndrome
  13. DOXORUBICIN HYDROCHLORIDE [Suspect]
     Active Substance: DOXORUBICIN HYDROCHLORIDE
     Indication: Richter^s syndrome
     Dosage: UNK
     Route: 065
     Dates: start: 20200106, end: 20200110
  14. FLUDARABINE PHOSPHATE [Suspect]
     Active Substance: FLUDARABINE PHOSPHATE
     Indication: Richter^s syndrome
     Dosage: UNK
     Route: 065
     Dates: start: 20150109, end: 20160102
  15. FLUDARABINE PHOSPHATE [Suspect]
     Active Substance: FLUDARABINE PHOSPHATE
     Indication: Malignant neoplasm progression
  16. BENDAMUSTINE HYDROCHLORIDE [Suspect]
     Active Substance: BENDAMUSTINE HYDROCHLORIDE
     Indication: Richter^s syndrome
     Dosage: UNK UNK, QD
     Route: 065
     Dates: start: 20210108, end: 20210109
  17. BENDAMUSTINE HYDROCHLORIDE [Suspect]
     Active Substance: BENDAMUSTINE HYDROCHLORIDE
     Indication: Malignant neoplasm progression
  18. GEMCITABINE HYDROCHLORIDE [Suspect]
     Active Substance: GEMCITABINE HYDROCHLORIDE
     Indication: Richter^s syndrome
     Dosage: UNK
     Route: 065
     Dates: start: 20200111, end: 20210101
  19. GEMCITABINE HYDROCHLORIDE [Suspect]
     Active Substance: GEMCITABINE HYDROCHLORIDE
     Indication: Malignant neoplasm progression
  20. IMBRUVICA [Suspect]
     Active Substance: IBRUTINIB
     Indication: Richter^s syndrome
     Dosage: UNK
     Route: 048
     Dates: start: 20200106, end: 20200110
  21. IMBRUVICA [Suspect]
     Active Substance: IBRUTINIB
     Indication: Malignant neoplasm progression
  22. POLATUZUMAB VEDOTIN [Suspect]
     Active Substance: POLATUZUMAB VEDOTIN
     Indication: Richter^s syndrome
     Dosage: UNK
     Route: 065
     Dates: start: 20210108, end: 20210109
  23. POLATUZUMAB VEDOTIN [Suspect]
     Active Substance: POLATUZUMAB VEDOTIN
     Indication: Malignant neoplasm progression
  24. RITUXIMAB [Suspect]
     Active Substance: RITUXIMAB
     Indication: Richter^s syndrome
     Dosage: UNK
     Route: 065
     Dates: start: 20150109, end: 20160201
  25. RITUXIMAB [Suspect]
     Active Substance: RITUXIMAB
     Indication: Malignant neoplasm progression
     Dosage: UNK
     Route: 065
     Dates: start: 20190111, end: 20200106
  26. RITUXIMAB [Suspect]
     Active Substance: RITUXIMAB
     Dosage: UNK
     Route: 065
     Dates: start: 20200106, end: 20200110
  27. RITUXIMAB [Suspect]
     Active Substance: RITUXIMAB
     Dosage: UNK
     Route: 065
     Dates: start: 20210108, end: 20210109
  28. VENETOCLAX [Suspect]
     Active Substance: VENETOCLAX
     Indication: Richter^s syndrome
     Dosage: UNK
     Route: 065
     Dates: start: 20190111, end: 20200106
  29. VENETOCLAX [Suspect]
     Active Substance: VENETOCLAX
     Indication: Malignant neoplasm progression
  30. VINCRISTINE SULFATE [Suspect]
     Active Substance: VINCRISTINE SULFATE
     Indication: Richter^s syndrome
     Dosage: UNK
     Route: 065
     Dates: start: 20200106, end: 20200110
  31. VINCRISTINE SULFATE [Suspect]
     Active Substance: VINCRISTINE SULFATE
     Indication: Malignant neoplasm progression

REACTIONS (3)
  - Richter^s syndrome [Unknown]
  - Malignant neoplasm progression [Unknown]
  - Off label use [Unknown]

NARRATIVE: CASE EVENT DATE: 20210108
